FAERS Safety Report 23387942 (Version 1)
Quarter: 2024Q1

REPORT INFORMATION
  Report Type: Spontaneous
  Country: US (occurrence: None)
  Receive Date: 20240109
  Receipt Date: 20240109
  Transmission Date: 20240409
  Serious: No
  Sender: FDA-Public Use
  Company Number: None

PATIENT
  Age: 57 Year
  Sex: Male

DRUGS (1)
  1. CYANOCOBALAMIN\SEMAGLUTIDE [Suspect]
     Active Substance: CYANOCOBALAMIN\SEMAGLUTIDE
     Dosage: 0.5 MIL MILLITRE  WEEKLY SUBCUTANEOUS?
     Route: 058

REACTIONS (3)
  - Therapy change [None]
  - Dermatitis allergic [None]
  - Rash erythematous [None]

NARRATIVE: CASE EVENT DATE: 20231225
